FAERS Safety Report 7988633-7 (Version None)
Quarter: 2011Q4

REPORT INFORMATION
  Report Type: 
  Country: None (occurrence: None)
  Receive Date: 20111218
  Receipt Date: 20050303
  Transmission Date: 20120403
  Serious: Yes (Other)
  Sender: FDA-Public Use
  Company Number: PHHY2005MX007070

PATIENT
  Sex: Female

DRUGS (5)
  1. DIOVAN [Suspect]
     Dosage: 160 MG, QD
     Route: 048
  2. LESCOL XL [Concomitant]
  3. DIOVAN [Suspect]
     Indication: HYPERTENSION
     Dosage: 80 MG, QD
     Route: 048
  4. LEVOTHYROXINE SODIUM [Concomitant]
  5. CALCIUM [Concomitant]

REACTIONS (2)
  - HEADACHE [None]
  - EYE HAEMORRHAGE [None]
